FAERS Safety Report 8587770-6 (Version None)
Quarter: 2012Q3

REPORT INFORMATION
  Report Type: 
  Country: None (occurrence: None)
  Receive Date: 20120813
  Receipt Date: 20120801
  Transmission Date: 20120928
  Serious: Yes (Other)
  Sender: FDA-Public Use
  Company Number: JP-009507513-1208JPN002928

PATIENT

DRUGS (1)
  1. ZIOPTAN [Suspect]
     Dosage: UNK
     Route: 047
     Dates: start: 20110414

REACTIONS (1)
  - VITREOUS HAEMORRHAGE [None]
